FAERS Safety Report 14352438 (Version 1)
Quarter: 2018Q1

REPORT INFORMATION
  Report Type: Spontaneous
  Country: SE (occurrence: SE)
  Receive Date: 20180104
  Receipt Date: 20180104
  Transmission Date: 20180509
  Serious: Yes (Other)
  Sender: FDA-Public Use
  Company Number: SE-SHIRE-SE201735429

PATIENT
  Age: 5 Year
  Sex: Female

DRUGS (1)
  1. HUMAN ALBUMIN [Suspect]
     Active Substance: ALBUMIN HUMAN
     Indication: HYPOVOLAEMIA
     Dosage: IN TOTAL
     Route: 042
     Dates: start: 20171019, end: 20171019

REACTIONS (2)
  - Pruritus [Recovered/Resolved]
  - Eye swelling [Recovered/Resolved]

NARRATIVE: CASE EVENT DATE: 20171019
